FAERS Safety Report 11144563 (Version 1)
Quarter: 2015Q2

REPORT INFORMATION
  Report Type: Spontaneous
  Country: US (occurrence: None)
  Receive Date: 20150526
  Receipt Date: 20150526
  Transmission Date: 20150821
  Serious: Yes (Hospitalization)
  Sender: FDA-Public Use
  Company Number: US-MDCO-15-00224

PATIENT
  Age: 33 Year
  Sex: Female

DRUGS (3)
  1. KEFLEX [Concomitant]
     Active Substance: CEPHALEXIN
  2. ORBACTIV [Suspect]
     Active Substance: ORITAVANCIN
     Indication: ABSCESS
     Dosage: 2/3 OF 1200MG, INTRAVENOUS DRIP
     Route: 041
  3. BACTRIM [Concomitant]
     Active Substance: SULFAMETHOXAZOLE\TRIMETHOPRIM

REACTIONS (4)
  - Dysphagia [None]
  - Pharyngeal disorder [None]
  - Paraesthesia [None]
  - Red man syndrome [None]

NARRATIVE: CASE EVENT DATE: 201504
